FAERS Safety Report 18902555 (Version 1)
Quarter: 2021Q1

REPORT INFORMATION
  Report Type: Spontaneous
  Country: AU (occurrence: AU)
  Receive Date: 20210216
  Receipt Date: 20210216
  Transmission Date: 20210420
  Serious: Yes (Other)
  Sender: FDA-Public Use
  Company Number: AU-009507513-2102AUS006038

PATIENT
  Age: 51 Year
  Sex: Female

DRUGS (14)
  1. DIAZEPAM. [Suspect]
     Active Substance: DIAZEPAM
  2. CALCIUM CARBONATE. [Concomitant]
     Active Substance: CALCIUM CARBONATE
  3. DESVENLAFAXINE. [Suspect]
     Active Substance: DESVENLAFAXINE
  4. CLOZAPINE. [Suspect]
     Active Substance: CLOZAPINE
  5. MAGNESIUM ASPARTATE [Concomitant]
     Active Substance: MAGNESIUM ASPARTATE
  6. ASPIRIN. [Concomitant]
     Active Substance: ASPIRIN
  7. IVABRADINE [Concomitant]
     Active Substance: IVABRADINE
  8. ZIPRASIDONE. [Suspect]
     Active Substance: ZIPRASIDONE
  9. THIAMINE. [Concomitant]
     Active Substance: THIAMINE
  10. ACAMPROSATE CALCIUM. [Concomitant]
     Active Substance: ACAMPROSATE CALCIUM
  11. PANTOPRAZOLE [Concomitant]
     Active Substance: PANTOPRAZOLE
  12. MIRTAZAPINE. [Suspect]
     Active Substance: MIRTAZAPINE
  13. TARGIN [Suspect]
     Active Substance: NALOXONE HYDROCHLORIDE\OXYCODONE HYDROCHLORIDE
  14. QUETIAPINE FUMARATE. [Suspect]
     Active Substance: QUETIAPINE FUMARATE

REACTIONS (5)
  - Cardiac arrest [Unknown]
  - Wernicke-Korsakoff syndrome [Unknown]
  - Left ventricular dysfunction [Unknown]
  - Paranoia [Unknown]
  - Schizophrenia [Unknown]
